FAERS Safety Report 14029909 (Version 2)
Quarter: 2019Q1

REPORT INFORMATION
  Report Type: Report from Study
  Country: US (occurrence: US)
  Receive Date: 20170930
  Receipt Date: 20190102
  Transmission Date: 20190417
  Serious: No
  Sender: FDA-Public Use
  Company Number: US-SA-2017SA113709

PATIENT
  Age: 44 Year
  Sex: Male

DRUGS (2)
  1. TERIFLUNOMIDE. [Suspect]
     Active Substance: TERIFLUNOMIDE
     Indication: MULTIPLE SCLEROSIS
     Dosage: 14 MG,QD
     Route: 048
     Dates: start: 20170427
  2. ANDROGEL [Concomitant]
     Active Substance: TESTOSTERONE
     Indication: BLOOD TESTOSTERONE DECREASED
     Dosage: UNK UNK,UNK
     Route: 065
     Dates: start: 2016, end: 2017

REACTIONS (5)
  - Depressed mood [Unknown]
  - Hypersensitivity [Unknown]
  - Social avoidant behaviour [Unknown]
  - Blood pressure increased [Unknown]
  - Fall [Not Recovered/Not Resolved]
